FAERS Safety Report 5928814-7 (Version None)
Quarter: 2008Q4

REPORT INFORMATION
  Report Type: 
  Country: None (occurrence: None)
  Receive Date: 20081020
  Receipt Date: 20081003
  Transmission Date: 20090506
  Serious: Yes (Hospitalization)
  Sender: FDA-Public Use
  Company Number: 2008BI022504

PATIENT
  Age: 53 Year
  Sex: Male

DRUGS (10)
  1. TYSABRI [Suspect]
     Indication: RELAPSING-REMITTING MULTIPLE SCLEROSIS
     Dosage: 300 MG; QM; IV
     Route: 042
     Dates: start: 20080109, end: 20080716
  2. PHENOXYMETHYL PENICILLIN [Concomitant]
  3. GLYBURIDE [Concomitant]
  4. LIPITOR [Concomitant]
  5. LAMICTAL [Concomitant]
  6. LITHIONIT [Concomitant]
  7. RIVOTRIL [Concomitant]
  8. TRUXAL [Concomitant]
  9. METFORMIN HCL [Concomitant]
  10. NITROGLYCERIN [Concomitant]

REACTIONS (5)
  - ANGINA UNSTABLE [None]
  - ISCHAEMIA [None]
  - MALAISE [None]
  - MYOCARDIAL INFARCTION [None]
  - VENTRICULAR EXTRASYSTOLES [None]
